FAERS Safety Report 22770518 (Version 2)
Quarter: 2024Q3

REPORT INFORMATION
  Report Type: Report from Study
  Country: JP (occurrence: JP)
  Receive Date: 20230801
  Receipt Date: 20240702
  Transmission Date: 20241016
  Serious: Yes (Hospitalization)
  Sender: GILEAD
  Company Number: JP-GILEAD-2020-0475375

PATIENT
  Age: 26 Year
  Sex: Male

DRUGS (11)
  1. BICTEGRAVIR\EMTRICITABINE\TENOFOVIR ALAFENAMIDE [Suspect]
     Active Substance: BICTEGRAVIR\EMTRICITABINE\TENOFOVIR ALAFENAMIDE
     Indication: HIV infection
     Dosage: 1 DOSAGE FORM, QD
     Route: 048
     Dates: start: 20190529
  2. XYZAL [Concomitant]
     Active Substance: LEVOCETIRIZINE DIHYDROCHLORIDE
     Indication: Dermatitis atopic
     Dosage: UNK
     Dates: start: 20190626, end: 20210427
  3. XYZAL [Concomitant]
     Active Substance: LEVOCETIRIZINE DIHYDROCHLORIDE
     Indication: Seasonal allergy
  4. SINGULAIR [Concomitant]
     Active Substance: MONTELUKAST SODIUM
     Indication: Dermatitis atopic
     Dosage: UNK
     Dates: start: 20190626, end: 20210427
  5. SINGULAIR [Concomitant]
     Active Substance: MONTELUKAST SODIUM
     Indication: Seasonal allergy
  6. DEXCHLORPHENIRAMINE MALEATE [Concomitant]
     Active Substance: DEXCHLORPHENIRAMINE MALEATE
     Indication: Dermatitis atopic
     Dosage: UNK
     Dates: start: 20190626, end: 20210427
  7. DEXCHLORPHENIRAMINE MALEATE [Concomitant]
     Active Substance: DEXCHLORPHENIRAMINE MALEATE
     Indication: Seasonal allergy
  8. LOCOID [Concomitant]
     Active Substance: HYDROCORTISONE BUTYRATE
     Indication: Dermatitis atopic
     Dosage: UNK
     Dates: start: 20190626, end: 20200727
  9. BETAMETHASONE DIPROPIONATE [Concomitant]
     Active Substance: BETAMETHASONE DIPROPIONATE
     Indication: Dermatitis atopic
     Dosage: UNK
     Dates: start: 20190626, end: 20200727
  10. BETAMETHASONE DIPROPIONATE [Concomitant]
     Active Substance: BETAMETHASONE DIPROPIONATE
     Indication: Dermatitis atopic
     Dosage: UNK
     Dates: start: 20190626, end: 20200727
  11. DESLORATADINE [Concomitant]
     Active Substance: DESLORATADINE
     Dosage: UNK
     Dates: end: 20230207

REACTIONS (10)
  - Cartilage injury [Recovering/Resolving]
  - Herpes zoster [Recovering/Resolving]
  - Syphilis [Recovering/Resolving]
  - Impetigo [Recovering/Resolving]
  - Anal fissure [Recovering/Resolving]
  - Hyperuricaemia [Not Recovered/Not Resolved]
  - Gout [Recovering/Resolving]
  - Gout [Recovering/Resolving]
  - Liver disorder [Not Recovered/Not Resolved]
  - Weight increased [Not Recovered/Not Resolved]

NARRATIVE: CASE EVENT DATE: 20190626
